FAERS Safety Report 13415574 (Version 2)
Quarter: 2017Q2

REPORT INFORMATION
  Report Type: Report from Study
  Country: US (occurrence: US)
  Receive Date: 20170407
  Receipt Date: 20170424
  Transmission Date: 20170830
  Serious: Yes (Hospitalization)
  Sender: FDA-Public Use
  Company Number: US-JAZZ-2017-US-003998

PATIENT
  Age: 55 Year
  Sex: Female

DRUGS (45)
  1. NAPROXEN. [Concomitant]
     Active Substance: NAPROXEN
  2. TYLENOL EXTRA STRENGTH [Concomitant]
     Active Substance: ACETAMINOPHEN
  3. CEPHALEXIN                         /00145501/ [Concomitant]
     Active Substance: CEPHALEXIN
  4. ASPIRIN                            /00002701/ [Concomitant]
     Active Substance: ASPIRIN
  5. CLONIDINE HCL [Concomitant]
     Active Substance: CLONIDINE HYDROCHLORIDE
  6. FLOVENT HFA [Concomitant]
     Active Substance: FLUTICASONE PROPIONATE
  7. CHANTIX [Concomitant]
     Active Substance: VARENICLINE TARTRATE
  8. DIOVAN [Concomitant]
     Active Substance: VALSARTAN
  9. NORVASC [Concomitant]
     Active Substance: AMLODIPINE BESYLATE
  10. LORATADINE. [Concomitant]
     Active Substance: LORATADINE
  11. XYREM [Suspect]
     Active Substance: SODIUM OXYBATE
     Indication: NARCOLEPSY
     Dosage: 2.25 G, BID
     Route: 048
     Dates: start: 201507, end: 2015
  12. HORIZANT [Concomitant]
     Active Substance: GABAPENTIN ENACARBIL
  13. KLONOPIN [Concomitant]
     Active Substance: CLONAZEPAM
  14. MIRALAX [Concomitant]
     Active Substance: POLYETHYLENE GLYCOL 3350
  15. SPIRONOLACTONE. [Concomitant]
     Active Substance: SPIRONOLACTONE
  16. ADDERALL [Concomitant]
     Active Substance: AMPHETAMINE ASPARTATE\AMPHETAMINE SULFATE\DEXTROAMPHETAMINE SACCHARATE\DEXTROAMPHETAMINE SULFATE
  17. PROMETHAZINE [Concomitant]
     Active Substance: PROMETHAZINE\PROMETHAZINE HYDROCHLORIDE
  18. ADVAIR HFA [Concomitant]
     Active Substance: FLUTICASONE PROPIONATE\SALMETEROL XINAFOATE
  19. GABAPENTIN. [Concomitant]
     Active Substance: GABAPENTIN
  20. VENTOLIN HFA [Concomitant]
     Active Substance: ALBUTEROL SULFATE
  21. MEDROL [Concomitant]
     Active Substance: METHYLPREDNISOLONE
  22. CLARITIN [Concomitant]
     Active Substance: LORATADINE
  23. TOPAMAX [Concomitant]
     Active Substance: TOPIRAMATE
  24. TRAMADOL HCL [Concomitant]
     Active Substance: TRAMADOL HYDROCHLORIDE
  25. MELOXICAM. [Concomitant]
     Active Substance: MELOXICAM
  26. CLOBETASOL [Concomitant]
     Active Substance: CLOBETASOL
  27. LOMOTIL [Concomitant]
     Active Substance: ATROPINE SULFATE\DIPHENOXYLATE HYDROCHLORIDE
  28. PROPRANOLOL [Concomitant]
     Active Substance: PROPRANOLOL HYDROCHLORIDE
  29. XYREM [Suspect]
     Active Substance: SODIUM OXYBATE
     Indication: CATAPLEXY
     Dosage: DOSE ADJUSTMENT
     Route: 048
     Dates: start: 201507, end: 2016
  30. XYREM [Suspect]
     Active Substance: SODIUM OXYBATE
     Dosage: 3.75 G, BID
     Route: 048
     Dates: start: 201612
  31. LOMOTIL [Concomitant]
     Active Substance: ATROPINE SULFATE\DIPHENOXYLATE HYDROCHLORIDE
  32. HYOSCYAMINE. [Concomitant]
     Active Substance: HYOSCYAMINE
  33. ALBUTEROL SULFATE. [Concomitant]
     Active Substance: ALBUTEROL SULFATE
  34. MIRAPEX [Concomitant]
     Active Substance: PRAMIPEXOLE DIHYDROCHLORIDE
  35. FLUTICASONE PROPIONATE. [Concomitant]
     Active Substance: FLUTICASONE PROPIONATE
  36. PREMARIN [Concomitant]
     Active Substance: ESTROGENS, CONJUGATED
  37. REQUIP [Concomitant]
     Active Substance: ROPINIROLE HYDROCHLORIDE
  38. SIMVASTATIN. [Concomitant]
     Active Substance: SIMVASTATIN
  39. CLONAZEPAM. [Concomitant]
     Active Substance: CLONAZEPAM
  40. CYCLOBENZAPRINE. [Concomitant]
     Active Substance: CYCLOBENZAPRINE
  41. FLEXERIL [Concomitant]
     Active Substance: CYCLOBENZAPRINE HYDROCHLORIDE
  42. NUVIGIL [Concomitant]
     Active Substance: ARMODAFINIL
  43. DICYCLOMINE                        /00068601/ [Concomitant]
     Active Substance: DICYCLOMINE HYDROCHLORIDE
  44. DULOXETINE HCL [Concomitant]
     Active Substance: DULOXETINE HYDROCHLORIDE
  45. OMEPRAZOLE. [Concomitant]
     Active Substance: OMEPRAZOLE

REACTIONS (6)
  - Eye swelling [Not Recovered/Not Resolved]
  - Herpes zoster [Not Recovered/Not Resolved]
  - Emergency care [Unknown]
  - Pruritus [Not Recovered/Not Resolved]
  - Eye pruritus [Not Recovered/Not Resolved]
  - Fall [Recovered/Resolved]

NARRATIVE: CASE EVENT DATE: 20170326
